FAERS Safety Report 4283156-3 (Version None)
Quarter: 2004Q1

REPORT INFORMATION
  Report Type: 
  Country: None (occurrence: None)
  Receive Date: 20040129
  Receipt Date: 20040116
  Transmission Date: 20041129
  Serious: No
  Sender: FDA-Public Use
  Company Number: 2003GB03391

PATIENT
  Age: 63 Year
  Sex: Female

DRUGS (3)
  1. SEROQUEL [Suspect]
     Indication: BIPOLAR DISORDER
     Dosage: 200 MG BID PO
     Route: 048
  2. SEROQUEL [Suspect]
     Indication: MANIA
     Dosage: 200 MG BID PO
     Route: 048
  3. AMISULPRIDE [Concomitant]

REACTIONS (1)
  - WOLFF-PARKINSON-WHITE SYNDROME [None]
